FAERS Safety Report 17263238 (Version 1)
Quarter: 2020Q1

REPORT INFORMATION
  Report Type: Spontaneous
  Country: IN (occurrence: IN)
  Receive Date: 20200113
  Receipt Date: 20200113
  Transmission Date: 20200409
  Serious: Yes (Death, Other)
  Sender: FDA-Public Use
  Company Number: IN-AMGEN-INDSP2020003647

PATIENT

DRUGS (3)
  1. POMALIDOMIDE [Concomitant]
     Active Substance: POMALIDOMIDE
     Indication: PLASMA CELL MYELOMA
     Dosage: UNK
     Route: 065
     Dates: start: 201708, end: 201810
  2. DEXAMETHASONE. [Concomitant]
     Active Substance: DEXAMETHASONE
     Indication: PLASMA CELL MYELOMA
     Dosage: UNK
     Route: 065
     Dates: start: 201708, end: 201810
  3. CARFILZOMIB [Suspect]
     Active Substance: CARFILZOMIB
     Indication: PLASMA CELL MYELOMA
     Dosage: UNK
     Route: 065
     Dates: start: 201708, end: 201810

REACTIONS (20)
  - H1N1 influenza [Unknown]
  - Corona virus infection [Unknown]
  - Febrile neutropenia [Unknown]
  - Neuropathy peripheral [Unknown]
  - Renal failure [Unknown]
  - Parainfluenzae virus infection [Unknown]
  - Drug ineffective [Unknown]
  - Hyponatraemia [Unknown]
  - Hypertension [Unknown]
  - Anaemia [Unknown]
  - Bone disorder [Unknown]
  - Bacterial infection [Unknown]
  - Thrombocytopenia [Unknown]
  - Therapeutic product effect incomplete [Unknown]
  - Fungal infection [Unknown]
  - Death [Fatal]
  - Plasma cell myeloma recurrent [Unknown]
  - Neutropenia [Unknown]
  - Rhinovirus infection [Unknown]
  - Fatigue [Unknown]
